FAERS Safety Report 7964092-5 (Version None)
Quarter: 2011Q4

REPORT INFORMATION
  Report Type: 
  Country: None (occurrence: None)
  Receive Date: 20111208
  Receipt Date: 20111130
  Transmission Date: 20120403
  Serious: Yes (Death, Hospitalization)
  Sender: FDA-Public Use
  Company Number: DE-UCBSA-027043

PATIENT
  Age: 70 Year
  Sex: Male
  Weight: 75 kg

DRUGS (55)
  1. VIMPAT [Suspect]
     Indication: EPILEPSY
     Route: 048
     Dates: start: 20101029, end: 20110106
  2. FRAGMIN P FORTE [Concomitant]
     Indication: THROMBOSIS PROPHYLAXIS
     Dosage: 5000 IE DAILY
     Dates: start: 20101027
  3. AMLODIPINE [Concomitant]
     Indication: HYPERTENSION
     Dates: start: 20101025, end: 20101026
  4. NACL [Concomitant]
     Dosage: 2-2-2-0
     Dates: start: 20101201, end: 20101201
  5. THEOPHYLLINE [Concomitant]
     Indication: CHRONIC OBSTRUCTIVE PULMONARY DISEASE
     Dates: start: 20101025, end: 20101026
  6. FUNGIZID [Concomitant]
     Indication: GENITAL INFECTION FUNGAL
     Dosage: IF NECESSARY
     Dates: start: 20101025
  7. ASPIRIN [Concomitant]
     Indication: PROPHYLAXIS
  8. VIMPAT [Suspect]
     Dosage: MORNING,EVENING
     Route: 048
     Dates: start: 20101026, end: 20101001
  9. KEPPRA [Concomitant]
     Dosage: 1-0-1
     Route: 048
     Dates: start: 20101026, end: 20110106
  10. PREDNISOLONE [Concomitant]
     Dates: start: 20101029, end: 20101029
  11. NEXIUM [Concomitant]
     Dosage: 0-0-1
     Dates: start: 20101025
  12. NACL [Concomitant]
     Dosage: IV SOLUTION, IF NECESSARY
     Route: 042
     Dates: start: 20101231
  13. FOSAMAX [Concomitant]
     Indication: PROPHYLAXIS
     Dosage: 1X/WEEK ON SATURDAYS
     Dates: start: 20101029
  14. HEPARIN SODIUM [Concomitant]
     Dosage: 7500 1-0-1
  15. EBRANTIL [Concomitant]
     Indication: HYPERTENSION
     Dosage: IV SOLUTION, IF NEEDED
     Route: 042
     Dates: start: 20101025, end: 20101029
  16. BRICANYL [Concomitant]
     Indication: CHRONIC OBSTRUCTIVE PULMONARY DISEASE
     Dosage: 1/2 AMPOULES
     Dates: start: 20101026, end: 20101026
  17. HEPARIN [Concomitant]
     Indication: PROPHYLAXIS
     Dates: start: 20101201
  18. PARENTEROL [Concomitant]
     Indication: DIARRHOEA
     Dosage: 3X1
     Dates: start: 20101029
  19. SULTANOL/ATROVENT [Concomitant]
     Dosage: SULTANOL/ATROVENT 8^0/2 ML, 6X1 TBL. FORM:SOLUTION FOR DRIPPING.
     Dates: start: 20101028, end: 20101029
  20. METFORMIN HCL [Concomitant]
     Indication: DIABETES MELLITUS
     Dates: start: 20101028, end: 20101028
  21. FENTANYL [Concomitant]
     Dates: start: 20101025
  22. NACL [Concomitant]
     Indication: PROPHYLAXIS
     Dosage: 4X2
     Dates: start: 20101029, end: 20101201
  23. NACL [Concomitant]
     Dosage: IV SOLUTION, IF NECESSARY
     Route: 042
     Dates: start: 20101231
  24. PCM [Concomitant]
     Indication: PAIN
     Dosage: 1 G, IV SOLUTION
     Route: 042
     Dates: start: 20101025, end: 20101026
  25. SEROQUEL XR [Concomitant]
     Indication: RESTLESSNESS
     Dates: start: 20101221
  26. ACETYLCYSTEINE [Concomitant]
     Dates: start: 20101029
  27. METFORMIN HCL [Concomitant]
     Dates: start: 20101029
  28. NACL [Concomitant]
     Dosage: 2-2-2-0
     Dates: start: 20101201, end: 20101201
  29. SEROQUEL XR [Concomitant]
     Indication: PSYCHOTIC DISORDER
     Dates: start: 20101221
  30. LASIX [Concomitant]
     Indication: RENAL FUNCTION TEST ABNORMAL
     Dosage: IV SOLUTION
     Route: 042
     Dates: start: 20101231
  31. KEPPRA [Concomitant]
     Dosage: 1000MG-0-1500 MG
     Route: 048
     Dates: start: 20101025
  32. AMLODIPINE [Concomitant]
     Dosage: 1-0-0
     Dates: start: 20101027
  33. SULTANOL/ATROVENT [Concomitant]
     Indication: CHRONIC OBSTRUCTIVE PULMONARY DISEASE
     Dosage: SULTANOL/ATROVENT 8^0/2 ML, 3X1 TBL. FORM:SOLUTION FOR DRIPPING.
     Dates: start: 20101025, end: 20101027
  34. PARENTEROL [Concomitant]
     Dosage: 1-0-1-0
  35. THIAMINE HCL [Concomitant]
     Dates: start: 20101025
  36. ACETYLCYSTEINE [Concomitant]
     Indication: CORONARY ARTERY DISEASE
     Dates: start: 20101025, end: 20101029
  37. ATACAND HCT [Concomitant]
     Indication: HYPOTONIA
     Dosage: 32/25 MG FORTE; 1X1 TABL
     Dates: start: 20101028
  38. SCOPOLAMINE [Concomitant]
     Dates: start: 20101025
  39. NACL [Concomitant]
     Indication: RENAL FUNCTION TEST ABNORMAL
     Dosage: 4X2
     Dates: start: 20101029, end: 20101201
  40. POTASSIUM VERLA [Concomitant]
     Indication: PROPHYLAXIS
     Dosage: 20 MVAL, 3X2 TBL
     Dates: start: 20101025
  41. HYDROCHLOROTHIAZIDE [Concomitant]
     Indication: HYPERTENSION
     Dates: start: 20101025, end: 20101027
  42. INVANZ [Concomitant]
     Indication: PNEUMONIA
     Dosage: 1X1 AMPOULES, IV SOLUTION
     Route: 042
     Dates: start: 20101025, end: 20101028
  43. PROPOFOL [Concomitant]
     Indication: SEDATION
     Dosage: 1%, IV SOLUTION
     Route: 042
     Dates: start: 20101025, end: 20101025
  44. VIMPAT [Suspect]
     Dosage: EVENING
     Route: 048
     Dates: start: 20101025, end: 20101025
  45. KALIUM VERLA [Concomitant]
     Dosage: 3X2
     Dates: start: 20101025
  46. FLUTIDE DA [Concomitant]
     Indication: CHRONIC OBSTRUCTIVE PULMONARY DISEASE
     Dosage: 0.5 1-0-1
     Dates: start: 20101029
  47. LEVOFLOXACIN [Concomitant]
     Indication: PNEUMONIA ASPIRATION
     Dosage: IV SOLUTION
     Route: 042
     Dates: start: 20101231
  48. VANCOMYCIN [Concomitant]
     Indication: GASTROENTERITIS CLOSTRIDIAL
     Dates: start: 20101029
  49. METRONIDAZOLE [Concomitant]
     Dates: start: 20101201
  50. METOCLOPRAMIDE [Concomitant]
     Dosage: APPLIED VIA TUBE.
     Dates: start: 20101025
  51. SIOFOR [Concomitant]
     Dosage: 1-0-1
  52. SPIRIVA [Concomitant]
     Indication: CHRONIC OBSTRUCTIVE PULMONARY DISEASE
     Dosage: 18 MCG
     Dates: start: 20101027, end: 20101029
  53. LORAZEPAM [Concomitant]
     Indication: PROPHYLAXIS
     Dates: start: 20101026, end: 20101026
  54. INSULINE RAPID [Concomitant]
     Indication: BLOOD GLUCOSE INCREASED
     Dosage: IF NECESSARY
     Dates: start: 20101027, end: 20101028
  55. METRONIDAZOLE [Concomitant]
     Indication: GASTROENTERITIS CLOSTRIDIAL
     Dates: start: 20101029, end: 20101201

REACTIONS (5)
  - PNEUMONIA ASPIRATION [None]
  - ACUTE PRERENAL FAILURE [None]
  - RENAL FUNCTION TEST ABNORMAL [None]
  - ASTHENIA [None]
  - DEHYDRATION [None]
